FAERS Safety Report 5699618-8 (Version None)
Quarter: 2008Q2

REPORT INFORMATION
  Report Type: 
  Country: None (occurrence: None)
  Receive Date: 20080410
  Receipt Date: 20080404
  Transmission Date: 20081010
  Serious: Yes (Life-Threatening, Hospitalization)
  Sender: FDA-Public Use
  Company Number: PHEH2007US15776

PATIENT
  Age: 59 Year
  Sex: Female
  Weight: 53.968 kg

DRUGS (4)
  1. RECLAST [Suspect]
     Dosage: 5 MG ONCE YEARLY
     Route: 042
     Dates: start: 20071129, end: 20071129
  2. DYAZIDE [Concomitant]
     Indication: VERTIGO
     Dosage: 37.5/25
  3. LEXAPRO [Concomitant]
     Indication: DEPRESSION
     Dosage: 10 MG, QD
     Route: 048
  4. LUNESTA [Concomitant]
     Indication: INSOMNIA
     Dosage: 2 MG QHS PRN
     Route: 048

REACTIONS (4)
  - CHEST PAIN [None]
  - MALAISE [None]
  - MYOCARDIAL INFARCTION [None]
  - TROPONIN INCREASED [None]
